FAERS Safety Report 9789446 (Version 2)
Quarter: 2014Q1

REPORT INFORMATION
  Report Type: Spontaneous
  Country: JP (occurrence: JP)
  Receive Date: 20131231
  Receipt Date: 20140120
  Transmission Date: 20141002
  Serious: Yes (Other)
  Sender: FDA-Public Use
  Company Number: JP-ROCHE-1325233

PATIENT
  Age: 62 Year
  Sex: Male

DRUGS (3)
  1. HERCEPTIN [Suspect]
     Indication: GASTRIC CANCER
     Dosage: DOSAGE IS UNCERTAIN.
     Route: 041
  2. CISPLATIN [Suspect]
     Indication: GASTRIC CANCER
     Route: 042
  3. TS-1 [Concomitant]
     Indication: GASTRIC CANCER
     Dosage: ADMINISTERING FOR 14 DAYS
     Route: 048

REACTIONS (4)
  - Obstruction gastric [Unknown]
  - Dysphagia [Unknown]
  - Vomiting [Unknown]
  - Hearing impaired [Unknown]
